FAERS Safety Report 6016820-6 (Version None)
Quarter: 2008Q4

REPORT INFORMATION
  Report Type: 
  Country: None (occurrence: None)
  Receive Date: 20081222
  Receipt Date: 20081218
  Transmission Date: 20090506
  Serious: Yes (Life-Threatening, Hospitalization)
  Sender: FDA-Public Use
  Company Number: MX-ABBOTT-08P-107-0490052-00

PATIENT
  Sex: Male
  Weight: 60 kg

DRUGS (3)
  1. RITONAVIR SOFT GELATIN CAPSULES [Suspect]
     Indication: HIV INFECTION
     Route: 048
     Dates: start: 20080525, end: 20081125
  2. TMC114 [Concomitant]
     Indication: HIV INFECTION
     Route: 048
     Dates: start: 20080525, end: 20081125
  3. TRUVADA [Concomitant]
     Indication: HIV INFECTION
     Route: 048
     Dates: start: 20080525, end: 20081125

REACTIONS (3)
  - ADVERSE DRUG REACTION [None]
  - DERMATITIS BULLOUS [None]
  - SECONDARY SYPHILIS [None]
